FAERS Safety Report 11092416 (Version 1)
Quarter: 2015Q2

REPORT INFORMATION
  Report Type: Spontaneous
  Country: CH (occurrence: CH)
  Receive Date: 20150506
  Receipt Date: 20150506
  Transmission Date: 20150821
  Serious: Yes (Hospitalization)
  Sender: FDA-Public Use
  Company Number: CH-JNJFOC-20150417514

PATIENT
  Age: 30 Year
  Sex: Male
  Weight: 55 kg

DRUGS (3)
  1. PARACETAMOL [Suspect]
     Active Substance: ACETAMINOPHEN
     Indication: PRODUCT USED FOR UNKNOWN INDICATION
     Route: 048
     Dates: start: 201411, end: 201411
  2. PARACETAMOL [Suspect]
     Active Substance: ACETAMINOPHEN
     Route: 048
  3. ALCOHOL. [Concomitant]
     Active Substance: ALCOHOL
     Indication: PRODUCT USED FOR UNKNOWN INDICATION
     Route: 065

REACTIONS (14)
  - Renal impairment [Unknown]
  - Hypoalbuminaemia [Unknown]
  - Overdose [Unknown]
  - Palpitations [Unknown]
  - Nausea [Unknown]
  - Fatigue [Unknown]
  - Vomiting [Unknown]
  - Ocular icterus [Unknown]
  - Acute kidney injury [Recovered/Resolved]
  - Acute hepatic failure [Recovering/Resolving]
  - Oliguria [Unknown]
  - Hypokalaemia [Unknown]
  - Abdominal pain upper [Unknown]
  - Cholestasis [Unknown]

NARRATIVE: CASE EVENT DATE: 20141106
